FAERS Safety Report 19496351 (Version 1)
Quarter: 2021Q3

REPORT INFORMATION
  Report Type: Spontaneous
  Country: US (occurrence: US)
  Receive Date: 20210702
  Receipt Date: 20210702
  Transmission Date: 20211014
  Serious: Yes (Life-Threatening, Disabling)
  Sender: FDA-Public Use
  Company Number: None

PATIENT
  Age: 46 Year
  Sex: Female
  Weight: 130.5 kg

DRUGS (11)
  1. XARELTO [Concomitant]
     Active Substance: RIVAROXABAN
  2. ELIQUIS [Concomitant]
     Active Substance: APIXABAN
  3. IRON [Concomitant]
     Active Substance: IRON
  4. B 12 SUPPLEMENT [Concomitant]
  5. SAVELLA [Suspect]
     Active Substance: MILNACIPRAN HYDROCHLORIDE
     Indication: FIBROMYALGIA
     Dosage: ?          QUANTITY:60 TABLET(S);?
     Route: 048
     Dates: start: 20210520, end: 20210623
  6. LUPRON INJ [Concomitant]
  7. METOPROLOL. [Concomitant]
     Active Substance: METOPROLOL
  8. OMEPRAZOLE. [Concomitant]
     Active Substance: OMEPRAZOLE
  9. FAMOTIDINE. [Concomitant]
     Active Substance: FAMOTIDINE
  10. LETROZOLE. [Concomitant]
     Active Substance: LETROZOLE
  11. MULTIVITAMIN [Concomitant]
     Active Substance: VITAMINS

REACTIONS (5)
  - Suicidal ideation [None]
  - Anger [None]
  - Mood altered [None]
  - Atrial fibrillation [None]
  - Anxiety [None]

NARRATIVE: CASE EVENT DATE: 20210617
